FAERS Safety Report 6638922-3 (Version None)
Quarter: 2010Q1

REPORT INFORMATION
  Report Type: 
  Country: None (occurrence: None)
  Receive Date: 20100316
  Receipt Date: 20100316
  Transmission Date: 20100710
  Serious: Yes (Life-Threatening)
  Sender: FDA-Public Use
  Company Number: None

PATIENT
  Age: 41 Year
  Sex: Male
  Weight: 131.5431 kg

DRUGS (1)
  1. AVELOX [Suspect]

REACTIONS (3)
  - OESOPHAGEAL SPASM [None]
  - PANIC ATTACK [None]
  - SWELLING [None]
